FAERS Safety Report 19100865 (Version 8)
Quarter: 2021Q3

REPORT INFORMATION
  Report Type: Report from Study
  Country: US (occurrence: US)
  Receive Date: 20210407
  Receipt Date: 20210907
  Transmission Date: 20211014
  Serious: Yes (Hospitalization)
  Sender: FDA-Public Use
  Company Number: US-B.I. PHARMACEUTICALS,INC./RIDGEFIELD-2021-BI-084875

PATIENT
  Age: 73 Year
  Sex: Male

DRUGS (2)
  1. OFEV [Suspect]
     Active Substance: NINTEDANIB
     Dosage: 150MG BID
     Dates: start: 20210214
  2. OFEV [Suspect]
     Active Substance: NINTEDANIB
     Indication: IDIOPATHIC PULMONARY FIBROSIS
     Dosage: OFEV 150MG ORALLY TWICE DAILY
     Route: 048
     Dates: start: 20210212, end: 202108

REACTIONS (14)
  - Dehydration [Recovering/Resolving]
  - Diarrhoea [Not Recovered/Not Resolved]
  - Fatigue [Not Recovered/Not Resolved]
  - Overdose [Unknown]
  - Back disorder [Unknown]
  - Constipation [Unknown]
  - Limb injury [Recovered/Resolved]
  - Malaise [Unknown]
  - Fall [Recovered/Resolved]
  - Contusion [Not Recovered/Not Resolved]
  - Faeces soft [Unknown]
  - Haematuria [Unknown]
  - Cystitis [Unknown]
  - Lumbar spinal stenosis [Not Recovered/Not Resolved]

NARRATIVE: CASE EVENT DATE: 20210316
